FAERS Safety Report 9717534 (Version 2)
Quarter: 2013Q4

REPORT INFORMATION
  Report Type: Spontaneous
  Country: US (occurrence: US)
  Receive Date: 20131127
  Receipt Date: 20131127
  Transmission Date: 20140711
  Serious: No
  Sender: FDA-Public Use
  Company Number: US-GILEAD-2009-0020507

PATIENT
  Sex: Female
  Weight: 65.77 kg

DRUGS (9)
  1. LETAIRIS [Suspect]
     Indication: PULMONARY ARTERIAL HYPERTENSION
     Route: 048
     Dates: start: 20090212
  2. WARFARIN [Concomitant]
  3. FUROSEMIDE [Concomitant]
  4. AVAPRO [Concomitant]
  5. TRIAMTERENE/HCTZ [Concomitant]
  6. METOPROLOL [Concomitant]
  7. POTASSIUM CL [Concomitant]
  8. BONIVA [Concomitant]
  9. LEVOTHYROXINE [Concomitant]

REACTIONS (1)
  - Fatigue [Unknown]
